FAERS Safety Report 23538043 (Version 1)
Quarter: 2024Q1

REPORT INFORMATION
  Report Type: Spontaneous
  Country: JP (occurrence: JP)
  Receive Date: 20240219
  Receipt Date: 20240219
  Transmission Date: 20240410
  Serious: Yes (Death, Other)
  Sender: FDA-Public Use
  Company Number: JP-ASTELLAS-2024US004752

PATIENT
  Age: 65 Year
  Sex: Male

DRUGS (1)
  1. CRESEMBA [Suspect]
     Active Substance: ISAVUCONAZONIUM SULFATE
     Indication: Bronchopulmonary aspergillosis
     Dosage: UNK, UNKNOWN FREQ.
     Route: 041
     Dates: start: 20240130, end: 20240202

REACTIONS (2)
  - Haematopoietic neoplasm [Fatal]
  - Condition aggravated [Fatal]
